FAERS Safety Report 25161040 (Version 1)
Quarter: 2025Q2

REPORT INFORMATION
  Report Type: Report from Study
  Country: US (occurrence: US)
  Receive Date: 20250404
  Receipt Date: 20250404
  Transmission Date: 20250716
  Serious: Yes (Other)
  Sender: ACADIA PHARMACEUTICALS
  Company Number: US-ACADIA PHARMACEUTICALS INC.-ACA-2025-PIM-003653

PATIENT
  Sex: Male

DRUGS (10)
  1. NUPLAZID [Suspect]
     Active Substance: PIMAVANSERIN TARTRATE
     Indication: Product used for unknown indication
     Dosage: 34 MILLIGRAM, QD (EVERY NIGHT)
     Route: 048
     Dates: start: 20250218
  2. ATORVASTATIN [Concomitant]
     Active Substance: ATORVASTATIN
  3. BRILINTA [Concomitant]
     Active Substance: TICAGRELOR
  4. CARBIDOPA AND LEVODOPA [Concomitant]
     Active Substance: CARBIDOPA\LEVODOPA
  5. FINASTERIDE [Concomitant]
     Active Substance: FINASTERIDE
  6. GOCOVRI [Concomitant]
     Active Substance: AMANTADINE
  7. OXYBUTYNIN [Concomitant]
     Active Substance: OXYBUTYNIN
  8. QUETIAPINE [Concomitant]
     Active Substance: QUETIAPINE
  9. RASAGILINE [Concomitant]
     Active Substance: RASAGILINE
  10. SERTRALINE [Concomitant]
     Active Substance: SERTRALINE HYDROCHLORIDE

REACTIONS (2)
  - Hallucination [Unknown]
  - Product dose omission issue [Unknown]
